FAERS Safety Report 20777409 (Version 1)
Quarter: 2022Q2

REPORT INFORMATION
  Report Type: Other
  Country: AU (occurrence: AU)
  Receive Date: 20220503
  Receipt Date: 20220503
  Transmission Date: 20220720
  Serious: Yes (Death)
  Sender: FDA-Public Use
  Company Number: AU-BoehringerIngelheim-2022-BI-167864

PATIENT

DRUGS (2)
  1. ALTEPLASE [Suspect]
     Active Substance: ALTEPLASE
     Indication: Pleural infection
     Dosage: INTRAPLEURAL INSTILLATION
     Route: 065
  2. SODIUM CHLORIDE [Concomitant]
     Active Substance: SODIUM CHLORIDE
     Indication: Vehicle solution use
     Dosage: INTRAPLEURAL INSTILLATION

REACTIONS (1)
  - Respiratory failure [Fatal]
